FAERS Safety Report 7099732-9 (Version None)
Quarter: 2010Q4

REPORT INFORMATION
  Report Type: 
  Country: None (occurrence: None)
  Receive Date: 20101112
  Receipt Date: 20101101
  Transmission Date: 20110411
  Serious: Yes (Hospitalization)
  Sender: FDA-Public Use
  Company Number: AR-JNJFOC-20101101587

PATIENT
  Sex: Female
  Weight: 71.8 kg

DRUGS (7)
  1. BLINDED; GOLIMUMA [Suspect]
     Indication: RHEUMATOID ARTHRITIS
     Route: 042
  2. BLINDED; GOLIMUMA [Suspect]
     Route: 042
  3. PLACEBO [Suspect]
     Indication: RHEUMATOID ARTHRITIS
     Route: 042
  4. PLACEBO [Suspect]
     Route: 042
  5. IBUPROFEN [Concomitant]
     Indication: RHEUMATOID ARTHRITIS
     Route: 048
  6. FOLIC ACID [Concomitant]
     Indication: RHEUMATOID ARTHRITIS
     Route: 048
  7. MEPREDNISONE [Concomitant]
     Indication: RHEUMATOID ARTHRITIS
     Route: 048

REACTIONS (1)
  - APPENDICITIS [None]
